FAERS Safety Report 22361208 (Version 3)
Quarter: 2023Q4

REPORT INFORMATION
  Report Type: Spontaneous
  Country: US (occurrence: US)
  Receive Date: 20230524
  Receipt Date: 20231110
  Transmission Date: 20240110
  Serious: Yes (Hospitalization, Other)
  Sender: FDA-Public Use
  Company Number: US-PFIZER INC-US-GBT-021666

PATIENT
  Age: 14 Year
  Sex: Male

DRUGS (1)
  1. OXBRYTA [Suspect]
     Active Substance: VOXELOTOR
     Indication: Sickle cell disease
     Dosage: 1500 MG, 1X/DAY (3 TABLETS A DAY EVERY NIGHT BEFORE BED)
     Route: 048
     Dates: start: 20230224

REACTIONS (6)
  - Sickle cell anaemia with crisis [Recovered/Resolved]
  - Asthma [Unknown]
  - COVID-19 [Unknown]
  - Pain [Unknown]
  - Oropharyngeal pain [Unknown]
  - Salivary hypersecretion [Recovering/Resolving]

NARRATIVE: CASE EVENT DATE: 20230101
